FAERS Safety Report 7218531-8 (Version None)
Quarter: 2011Q1

REPORT INFORMATION
  Report Type: 
  Country: None (occurrence: None)
  Receive Date: 20110110
  Receipt Date: 20101231
  Transmission Date: 20110831
  Serious: Yes (Death)
  Sender: FDA-Public Use
  Company Number: US-JNJFOC-20110101532

PATIENT
  Age: 71 Year
  Sex: Male

DRUGS (6)
  1. HYDROCODONE BITARTRATE AND ACETAMINOPHEN [Suspect]
     Indication: SUICIDE ATTEMPT
     Route: 048
  2. DIAZEPAM [Suspect]
     Indication: SUICIDE ATTEMPT
     Route: 048
  3. HYDROXYCHLOROQUINE [Suspect]
     Indication: SUICIDE ATTEMPT
     Route: 048
  4. PREDNISONE [Suspect]
     Indication: SUICIDE ATTEMPT
     Route: 048
  5. IBUPROFEN [Suspect]
     Indication: SUICIDE ATTEMPT
     Route: 048
  6. PROPOXYPHENE [Suspect]
     Indication: SUICIDE ATTEMPT
     Route: 048

REACTIONS (1)
  - TOXICITY TO VARIOUS AGENTS [None]
